FAERS Safety Report 9457592 (Version 1)
Quarter: 2013Q3

REPORT INFORMATION
  Report Type: Spontaneous
  Country: US (occurrence: None)
  Receive Date: 20130809
  Receipt Date: 20130809
  Transmission Date: 20140515
  Serious: Yes (Life-Threatening, Hospitalization)
  Sender: FDA-Public Use
  Company Number: IPC201307-000304

PATIENT
  Age: 73 Year
  Sex: Female

DRUGS (3)
  1. METFORMIN [Suspect]
  2. LISINOPRIL (LISINOPRIL) (LISINOPRIL) [Suspect]
  3. IBUPROFEN [Suspect]
     Dosage: FIRST DAY OF INJURY: 2400 MG

REACTIONS (3)
  - Renal failure acute [None]
  - Fall [None]
  - Humerus fracture [None]
